FAERS Safety Report 23251763 (Version 1)
Quarter: 2023Q4

REPORT INFORMATION
  Report Type: Spontaneous
  Country: DE (occurrence: DE)
  Receive Date: 20231201
  Receipt Date: 20231201
  Transmission Date: 20240109
  Serious: Yes (Other)
  Sender: FDA-Public Use
  Company Number: DE-BoehringerIngelheim-2023-BI-275866

PATIENT
  Age: 82 Year
  Sex: Female

DRUGS (2)
  1. PRADAXA [Suspect]
     Active Substance: DABIGATRAN ETEXILATE MESYLATE
     Indication: Product used for unknown indication
     Dosage: FORM STRENGTH: 110 MILLIGRAM
  2. ALTEPLASE [Suspect]
     Active Substance: ALTEPLASE
     Indication: Cerebellar infarction
     Dosage: DAILY DOSE: 56 MILLIGRAM(S)

REACTIONS (2)
  - Cerebellar infarction [Unknown]
  - Haemorrhagic infarction [Unknown]
